FAERS Safety Report 4491741-9 (Version None)
Quarter: 2004Q4

REPORT INFORMATION
  Report Type: 
  Country: None (occurrence: None)
  Receive Date: 20041103
  Receipt Date: 20041006
  Transmission Date: 20050328
  Serious: Yes (Life-Threatening, Hospitalization, Disabling)
  Sender: FDA-Public Use
  Company Number: US-MERCK-0410USA00962

PATIENT
  Age: 35 Year
  Sex: Male

DRUGS (11)
  1. VIOXX [Suspect]
     Indication: PAIN
     Route: 048
     Dates: start: 20040801, end: 20040930
  2. VIOXX [Suspect]
     Indication: SPINAL FRACTURE
     Route: 048
     Dates: start: 20040801, end: 20040930
  3. VICODIN [Concomitant]
     Route: 065
  4. PHENYTOIN [Concomitant]
     Route: 065
  5. [THERAPY UNSPECIFIED] [Concomitant]
     Route: 065
  6. AMBIEN [Concomitant]
     Route: 065
  7. EFFEXOR [Concomitant]
     Route: 065
  8. LIBRIUM [Concomitant]
     Route: 065
  9. DILANTIN [Concomitant]
     Route: 065
  10. CALCIUM (UNSPECIFIED) [Concomitant]
     Route: 065
  11. ADVAIR [Concomitant]
     Route: 065

REACTIONS (3)
  - CHEST PAIN [None]
  - FLATULENCE [None]
  - TINNITUS [None]
